FAERS Safety Report 26043187 (Version 2)
Quarter: 2025Q4

REPORT INFORMATION
  Report Type: Spontaneous
  Country: EU (occurrence: EU)
  Receive Date: 20251113
  Receipt Date: 20251124
  Transmission Date: 20260117
  Serious: Yes (Hospitalization, Other)
  Sender: NOVO NORDISK
  Company Number: None

PATIENT
  Age: 47 Year
  Sex: Female
  Weight: 78 kg

DRUGS (2)
  1. OZEMPIC [Suspect]
     Active Substance: SEMAGLUTIDE
     Dosage: 0.5 MG, QW
     Route: 058
     Dates: start: 20250301, end: 20250808
  2. OZEMPIC [Suspect]
     Active Substance: SEMAGLUTIDE
     Indication: Diabetes mellitus
     Dosage: 0.25 MG, QW
     Route: 058
     Dates: start: 20250130, end: 20250228

REACTIONS (4)
  - Sudden visual loss [Recovered/Resolved]
  - Optic disc oedema [Recovered/Resolved]
  - Optic ischaemic neuropathy [Recovered/Resolved]
  - Optic disc drusen [Recovered/Resolved]

NARRATIVE: CASE EVENT DATE: 20250715
